FAERS Safety Report 8208734-8 (Version None)
Quarter: 2012Q1

REPORT INFORMATION
  Report Type: 
  Country: None (occurrence: None)
  Receive Date: 20120314
  Receipt Date: 20120306
  Transmission Date: 20120608
  Serious: Yes (Other)
  Sender: FDA-Public Use
  Company Number: US-BAYER-2012-014316

PATIENT
  Age: 31 Year
  Sex: Female

DRUGS (13)
  1. COGENTIN [Concomitant]
     Dosage: 1 MG, QD, PRN
     Route: 048
     Dates: start: 20080331
  2. WELLBUTRIN SR [Concomitant]
     Dosage: 100 MG, BID
     Route: 048
     Dates: start: 20080331
  3. KLONOPIN [Concomitant]
     Dosage: 0.5 MG, PRN
     Route: 048
     Dates: start: 20080331
  4. FLONASE [Concomitant]
     Dosage: DAILY, AS NEEDED
     Route: 045
     Dates: start: 20080331
  5. YAZ [Suspect]
  6. RISPERDAL [Concomitant]
     Dosage: 50 MG, Q2WK
     Route: 030
     Dates: start: 20080331
  7. YASMIN [Suspect]
  8. ABILIFY [Concomitant]
     Dosage: 30 MG, QD
     Route: 048
     Dates: start: 20080331
  9. ALLEGRA [Concomitant]
     Dosage: 180 MG, QD, PRN
     Route: 048
     Dates: start: 20080331
  10. TEMAZEPAM [Concomitant]
     Dosage: 30 MG, HS
     Route: 048
     Dates: start: 20080331
  11. SEROQUEL [Concomitant]
     Dosage: 200 MG, HS
     Route: 048
     Dates: start: 20050331
  12. EFFEXOR XR [Concomitant]
     Dosage: 75 MG, BID
     Route: 048
     Dates: start: 20080331
  13. CEPHALEXIN [Concomitant]
     Indication: CELLULITIS
     Dosage: UNK
     Dates: start: 20080512

REACTIONS (3)
  - PAIN [None]
  - INJURY [None]
  - THROMBOPHLEBITIS SUPERFICIAL [None]
